FAERS Safety Report 7681143-6 (Version None)
Quarter: 2011Q3

REPORT INFORMATION
  Report Type: 
  Country: None (occurrence: None)
  Receive Date: 20110812
  Receipt Date: 20110810
  Transmission Date: 20111222
  Serious: No
  Sender: FDA-Public Use
  Company Number: US-PFIZER INC-2011184178

PATIENT
  Age: 20 Year
  Sex: Male
  Weight: 77.098 kg

DRUGS (1)
  1. ZOLOFT [Suspect]
     Indication: SOCIAL PHOBIA
     Dosage: 50 MG, 1X/DAY
     Route: 048
     Dates: start: 20110727, end: 20110810

REACTIONS (2)
  - SOMNOLENCE [None]
  - GAIT DISTURBANCE [None]
